FAERS Safety Report 17944493 (Version 1)
Quarter: 2020Q2

REPORT INFORMATION
  Report Type: Spontaneous
  Country: US (occurrence: US)
  Receive Date: 20200625
  Receipt Date: 20200625
  Transmission Date: 20200714
  Serious: No
  Sender: FDA-Public Use
  Company Number: US-ASTRAZENECA-2020SE72697

PATIENT
  Age: 991 Month
  Sex: Female
  Weight: 64.9 kg

DRUGS (1)
  1. FARXIGA [Suspect]
     Active Substance: DAPAGLIFLOZIN PROPANEDIOL
     Indication: TYPE 2 DIABETES MELLITUS
     Route: 048
     Dates: start: 20200515

REACTIONS (3)
  - Weight fluctuation [Unknown]
  - Vulvovaginal burning sensation [Unknown]
  - Pollakiuria [Unknown]

NARRATIVE: CASE EVENT DATE: 202005
